FAERS Safety Report 7070019-3 (Version None)
Quarter: 2010Q4

REPORT INFORMATION
  Report Type: 
  Country: None (occurrence: None)
  Receive Date: 20101028
  Receipt Date: 20100927
  Transmission Date: 20110411
  Serious: No
  Sender: FDA-Public Use
  Company Number: US-WYE-H17089110

PATIENT
  Sex: Female

DRUGS (5)
  1. ADVIL [Suspect]
     Indication: ANALGESIC THERAPY
     Dosage: 2 TABLETS AS NEEDED
     Route: 048
     Dates: end: 20100501
  2. TRAVATAN [Concomitant]
  3. LISINOPRIL [Concomitant]
  4. ACIPHEX [Concomitant]
  5. CRESTOR [Concomitant]

REACTIONS (1)
  - ABDOMINAL DISCOMFORT [None]
